FAERS Safety Report 15405620 (Version 1)
Quarter: 2018Q3

REPORT INFORMATION
  Report Type: Spontaneous
  Country: ES (occurrence: ES)
  Receive Date: 20180920
  Receipt Date: 20180920
  Transmission Date: 20181010
  Serious: Yes (Other)
  Sender: FDA-Public Use
  Company Number: ES-B.I. PHARMACEUTICALS,INC./RIDGEFIELD-2018-12-003096

PATIENT
  Age: 70 Year
  Sex: Female

DRUGS (1)
  1. GILOTRIF [Suspect]
     Active Substance: AFATINIB
     Indication: PRODUCT USED FOR UNKNOWN INDICATION
     Route: 048
     Dates: start: 20180719, end: 20180725

REACTIONS (4)
  - Aphthous ulcer [Unknown]
  - Nail disorder [Recovered/Resolved]
  - Diarrhoea [Unknown]
  - Product preparation error [Recovered/Resolved]

NARRATIVE: CASE EVENT DATE: 20180719
